FAERS Safety Report 7701502-2 (Version None)
Quarter: 2011Q3

REPORT INFORMATION
  Report Type: 
  Country: None (occurrence: None)
  Receive Date: 20110819
  Receipt Date: 20110819
  Transmission Date: 20111222
  Serious: Yes (Hospitalization)
  Sender: FDA-Public Use
  Company Number: None

PATIENT
  Sex: Male
  Weight: 70 kg

DRUGS (1)
  1. CISPLATIN [Suspect]
     Dosage: 390 MG
     Dates: end: 20061101

REACTIONS (2)
  - VOMITING [None]
  - NAUSEA [None]
